FAERS Safety Report 13650112 (Version 5)
Quarter: 2018Q3

REPORT INFORMATION
  Report Type: Spontaneous
  Country: US (occurrence: US)
  Receive Date: 20170614
  Receipt Date: 20180926
  Transmission Date: 20181010
  Serious: No
  Sender: FDA-Public Use
  Company Number: US-PFIZER INC-2017258756

PATIENT
  Age: 59 Year
  Sex: Female
  Weight: 68.27 kg

DRUGS (13)
  1. VERAPAMIL [Concomitant]
     Active Substance: VERAPAMIL HYDROCHLORIDE
     Indication: HYPERTENSION
     Dosage: 80 MG, 2X/DAY
     Route: 048
  2. LISINOPRIL. [Concomitant]
     Active Substance: LISINOPRIL
     Indication: HYPERTENSION
     Dosage: 20 MG, DAILY
     Route: 048
  3. LYRICA [Suspect]
     Active Substance: PREGABALIN
     Indication: ARTHRITIS
     Dosage: 150 MG, 3X/DAY
     Route: 048
     Dates: start: 20131009
  4. SAVELLA [Concomitant]
     Active Substance: MILNACIPRAN HYDROCHLORIDE
     Indication: FIBROMYALGIA
     Dosage: 100 MG, 2X/DAY
     Route: 048
  5. XELJANZ [Concomitant]
     Active Substance: TOFACITINIB CITRATE
     Indication: POST POLIO SYNDROME
  6. LYRICA [Suspect]
     Active Substance: PREGABALIN
     Indication: FIBROMYALGIA
     Dosage: 150 MG, 3X/DAY
     Route: 048
     Dates: end: 201706
  7. CELEBREX [Concomitant]
     Active Substance: CELECOXIB
     Indication: RHEUMATOID ARTHRITIS
  8. LYRICA [Suspect]
     Active Substance: PREGABALIN
     Indication: OSTEOARTHRITIS
  9. CELEBREX [Concomitant]
     Active Substance: CELECOXIB
     Indication: OSTEOARTHRITIS
     Dosage: 200 MG, 2X/DAY
     Route: 048
  10. XELJANZ [Concomitant]
     Active Substance: TOFACITINIB CITRATE
     Indication: FIBROMYALGIA
     Dosage: 11 MG, 1X/DAY
     Route: 048
  11. LYRICA [Suspect]
     Active Substance: PREGABALIN
     Indication: POST POLIO SYNDROME
     Dosage: UNK, 2X/DAY
  12. LYRICA [Suspect]
     Active Substance: PREGABALIN
     Indication: RHEUMATOID ARTHRITIS
  13. SAVELLA [Concomitant]
     Active Substance: MILNACIPRAN HYDROCHLORIDE
     Indication: POST POLIO SYNDROME

REACTIONS (14)
  - Hypophagia [Not Recovered/Not Resolved]
  - Chills [Recovered/Resolved]
  - Tremor [Recovered/Resolved]
  - Intentional product misuse [Unknown]
  - Diarrhoea [Recovered/Resolved]
  - Vomiting [Recovered/Resolved]
  - Agitation [Recovering/Resolving]
  - Withdrawal syndrome [Recovered/Resolved]
  - Pain [Recovering/Resolving]
  - Asthenia [Recovered/Resolved]
  - Mental status changes [Unknown]
  - Abdominal pain [Recovered/Resolved]
  - Headache [Recovered/Resolved]
  - General physical health deterioration [Unknown]

NARRATIVE: CASE EVENT DATE: 201706
